FAERS Safety Report 20988141 (Version 2)
Quarter: 2022Q3

REPORT INFORMATION
  Report Type: Spontaneous
  Country: JP (occurrence: JP)
  Receive Date: 20220621
  Receipt Date: 20220714
  Transmission Date: 20221027
  Serious: Yes (Other)
  Sender: FDA-Public Use
  Company Number: JP-CHUGAI-2022022599

PATIENT
  Age: 7 Decade
  Sex: Female

DRUGS (4)
  1. PERJETA [Suspect]
     Active Substance: PERTUZUMAB
     Indication: Breast cancer
     Dosage: (FORM STRENGTH: 420 MG/14 ML) 420 MILLIGRAM, ONCE/3WEEKS
     Route: 041
     Dates: end: 20220307
  2. PERJETA [Suspect]
     Active Substance: PERTUZUMAB
     Dosage: 420 UNK
     Route: 041
     Dates: start: 20220516
  3. HERCEPTIN [Suspect]
     Active Substance: TRASTUZUMAB
     Indication: Breast cancer
     Dosage: 6 MILLIGRAM, ONCE/3WEEKS
     Route: 041
     Dates: end: 20220307
  4. HERCEPTIN [Suspect]
     Active Substance: TRASTUZUMAB
     Route: 041

REACTIONS (1)
  - Cardiac dysfunction [Recovering/Resolving]
